FAERS Safety Report 7390170-8 (Version None)
Quarter: 2011Q2

REPORT INFORMATION
  Report Type: 
  Country: None (occurrence: None)
  Receive Date: 20110401
  Receipt Date: 20110329
  Transmission Date: 20111010
  Serious: Yes (Death, Other)
  Sender: FDA-Public Use
  Company Number: PHHY2011NL25866

PATIENT
  Sex: Female

DRUGS (4)
  1. HYDROCHLOROTHIAZIDE [Concomitant]
     Dosage: 25 MG, UNK
     Dates: start: 20050101
  2. FOSINOPRIL SODIUM [Concomitant]
     Dosage: 20 MG, UNK
     Dates: start: 20050101
  3. EXELON [Suspect]
     Dosage: 1.5 MG, UNK
     Route: 048
     Dates: start: 20000101
  4. SERETIDE [Concomitant]
     Dosage: 25/250MCG/DO, 120 DO+INH
     Dates: start: 20050101

REACTIONS (5)
  - PANCREATITIS NECROTISING [None]
  - LISTLESS [None]
  - DIARRHOEA [None]
  - DEPRESSION [None]
  - ABDOMINAL DISCOMFORT [None]
